FAERS Safety Report 5373724-X (Version None)
Quarter: 2007Q2

REPORT INFORMATION
  Report Type: 
  Country: None (occurrence: None)
  Receive Date: 20070615
  Receipt Date: 20060918
  Transmission Date: 20071010
  Serious: Yes (Other)
  Sender: FDA-Public Use
  Company Number: 200610441US

PATIENT
  Age: 79 Year
  Sex: Male

DRUGS (3)
  1. LANTUS [Suspect]
     Indication: DIABETES MELLITUS INSULIN-DEPENDENT
     Dosage: 11 (AT LUNCH TIME) U QD INJ
     Route: 042
  2. FELODIPINE [Concomitant]
  3. INSULIN (HUMALOG /00030501/) [Concomitant]

REACTIONS (2)
  - FALL [None]
  - SHOCK HYPOGLYCAEMIC [None]
